FAERS Safety Report 23811320 (Version 1)
Quarter: 2024Q2

REPORT INFORMATION
  Report Type: Spontaneous
  Country: ES (occurrence: ES)
  Receive Date: 20240502
  Receipt Date: 20240502
  Transmission Date: 20240716
  Serious: Yes (Death)
  Sender: FDA-Public Use
  Company Number: None

PATIENT
  Age: 47 Year
  Sex: Female

DRUGS (9)
  1. LEVOFLOXACIN [Interacting]
     Active Substance: LEVOFLOXACIN
     Indication: Respiratory tract infection
     Dosage: LEVOFLOXACINO (2791A)
     Route: 048
     Dates: start: 20240225, end: 20240226
  2. PREGABALIN [Interacting]
     Active Substance: PREGABALIN
     Indication: Pain
     Dosage: PREGABALINA (3897A)
     Route: 048
     Dates: start: 2023, end: 20240226
  3. TAPENTADOL [Interacting]
     Active Substance: TAPENTADOL
     Indication: Pain
     Dosage: EFG EXTENDED-RELEASE TABLETS, 60 TABLETS
     Route: 048
     Dates: start: 20240205, end: 20240226
  4. DIAZEPAM [Interacting]
     Active Substance: DIAZEPAM
     Indication: Pain
     Dosage: (730A)
     Route: 048
     Dates: start: 2023, end: 20240226
  5. TRAZODONE [Interacting]
     Active Substance: TRAZODONE HYDROCHLORIDE
     Indication: Pain
     Dosage: TRAZODONE HYDROCHLORIDE  (3160CH)
     Route: 048
     Dates: start: 2023, end: 20240226
  6. AMITRIPTYLINE [Interacting]
     Active Substance: AMITRIPTYLINE
     Indication: Pain
     Dosage: (395A)
     Route: 048
     Dates: start: 2023, end: 20240226
  7. LIDOCAINE HYDROCHLORIDE [Interacting]
     Active Substance: LIDOCAINE HYDROCHLORIDE
     Indication: Pain
     Dosage: TIME INTERVAL: TOTAL: INJECTABLE SOLUTION EFG, 100 AMPOULES X 10 ML
     Route: 042
     Dates: start: 20240216, end: 20240223
  8. TRAMADOL HYDROCHLORIDE [Interacting]
     Active Substance: TRAMADOL HYDROCHLORIDE
     Indication: Pain
     Dosage: HARD CAPSULES EFG, 20 CAPSULES
     Route: 048
     Dates: start: 20240213, end: 20240226
  9. CARBAMAZEPINE [Interacting]
     Active Substance: CARBAMAZEPINE
     Indication: Pain
     Dosage: (561A)
     Route: 048
     Dates: start: 2023, end: 20240226

REACTIONS (1)
  - Sudden death [Fatal]

NARRATIVE: CASE EVENT DATE: 20240226
